FAERS Safety Report 11003999 (Version 1)
Quarter: 2015Q2

REPORT INFORMATION
  Report Type: Spontaneous
  Country: US (occurrence: None)
  Receive Date: 20150407
  Receipt Date: 20150407
  Transmission Date: 20150821
  Serious: Yes (Life-Threatening, Hospitalization, Other)
  Sender: FDA-Public Use
  Company Number: 2015COV00071

PATIENT
  Age: 79 Year
  Sex: Male

DRUGS (1)
  1. DIGOXIN. [Suspect]
     Active Substance: DIGOXIN

REACTIONS (16)
  - Photopsia [None]
  - Heart rate irregular [None]
  - Atrial fibrillation [None]
  - Nodal rhythm [None]
  - Intentional overdose [None]
  - Cachexia [None]
  - Renal failure [None]
  - Vision blurred [None]
  - Mucosal dryness [None]
  - Vomiting [None]
  - Bradycardia [None]
  - Fatigue [None]
  - Cardioactive drug level increased [None]
  - Toxicity to various agents [None]
  - Nausea [None]
  - Product formulation issue [None]
